FAERS Safety Report 11371574 (Version 6)
Quarter: 2019Q1

REPORT INFORMATION
  Report Type: Spontaneous
  Country: US (occurrence: US)
  Receive Date: 20150812
  Receipt Date: 20190311
  Transmission Date: 20190417
  Serious: Yes (Hospitalization, Other)
  Sender: FDA-Public Use
  Company Number: US-DSJP-DSU-2015-124884

PATIENT

DRUGS (3)
  1. BENICAR [Suspect]
     Active Substance: OLMESARTAN MEDOXOMIL
     Indication: HYPERTENSION
     Dosage: 40 MG, QD
     Route: 048
     Dates: start: 20100806, end: 20141008
  2. TRIBENZOR [Suspect]
     Active Substance: AMLODIPINE BESYLATE\HYDROCHLOROTHIAZIDE\OLMESARTAN MEDOXOMIL
     Indication: PRODUCT USED FOR UNKNOWN INDICATION
     Dosage: 1 DF
     Dates: start: 20110808, end: 20141008
  3. BENICAR HCT [Suspect]
     Active Substance: HYDROCHLOROTHIAZIDE\OLMESARTAN MEDOXOMIL
     Indication: PRODUCT USED FOR UNKNOWN INDICATION
     Dosage: 40/12.5 MG, QD
     Route: 048
     Dates: start: 20140618, end: 20141008

REACTIONS (11)
  - Crohn^s disease [Unknown]
  - Gastrointestinal haemorrhage [Unknown]
  - Dizziness [Unknown]
  - Acute kidney injury [Unknown]
  - Rectal haemorrhage [Unknown]
  - Lactose intolerance [Unknown]
  - Diverticulitis [Unknown]
  - Diverticulum intestinal [Unknown]
  - Dyspnoea [Unknown]
  - Sprue-like enteropathy [Unknown]
  - Irritable bowel syndrome [Not Recovered/Not Resolved]

NARRATIVE: CASE EVENT DATE: 201110
